FAERS Safety Report 4895230-9 (Version None)
Quarter: 2006Q1

REPORT INFORMATION
  Report Type: 
  Country: None (occurrence: None)
  Receive Date: 20060130
  Receipt Date: 20060117
  Transmission Date: 20060701
  Serious: Yes (Other)
  Sender: FDA-Public Use
  Company Number: CA-GLAXOSMITHKLINE-A0589947A

PATIENT
  Age: 36 Year
  Sex: Female
  Weight: 44.2 kg

DRUGS (4)
  1. RETROVIR [Suspect]
     Indication: HIV INFECTION CDC CATEGORY A2
     Route: 065
     Dates: start: 20060103, end: 20060113
  2. ATAZANAVIR [Suspect]
     Indication: HIV INFECTION CDC CATEGORY A2
     Dosage: 400MG PER DAY
     Route: 065
     Dates: start: 20060103, end: 20060113
  3. 3TC [Concomitant]
     Indication: DRUG USE FOR UNKNOWN INDICATION
     Route: 065
     Dates: start: 20060102, end: 20060113
  4. L-THYROXINE [Concomitant]
     Dosage: 112MCG PER DAY
     Dates: start: 20010415

REACTIONS (16)
  - BLOOD BILIRUBIN INCREASED [None]
  - BLOOD LACTATE DEHYDROGENASE INCREASED [None]
  - CHAPPED LIPS [None]
  - DYSKINESIA [None]
  - EOSINOPHILIA [None]
  - EYELID OEDEMA [None]
  - JAUNDICE [None]
  - LIP ULCERATION [None]
  - MALAISE [None]
  - MUSCLE TWITCHING [None]
  - MYOCLONUS [None]
  - PHARYNGITIS STREPTOCOCCAL [None]
  - PYREXIA [None]
  - RASH ERYTHEMATOUS [None]
  - RASH PRURITIC [None]
  - SWELLING FACE [None]
